FAERS Safety Report 7690783-X (Version None)
Quarter: 2011Q3

REPORT INFORMATION
  Report Type: 
  Country: None (occurrence: None)
  Receive Date: 20110818
  Receipt Date: 20110815
  Transmission Date: 20111222
  Serious: Yes (Hospitalization)
  Sender: FDA-Public Use
  Company Number: GB-AMGEN-GBRCT2011037310

PATIENT
  Age: 36 Year
  Sex: Male

DRUGS (15)
  1. OMEPRAZOLE [Concomitant]
     Dosage: UNK
  2. AMOXICILLIN AND CLAVULANATE POTASSIUM [Concomitant]
     Indication: INFECTION
     Dosage: 625 MG, TID
     Dates: start: 20110714
  3. DEXAMETHASONE [Concomitant]
     Dosage: UNK MG, UNK
     Route: 042
     Dates: start: 20110714
  4. METOCLOPRAMIDE [Concomitant]
     Dosage: 10 MG, UNK
     Dates: start: 20110714
  5. OXALIPLATIN [Concomitant]
     Dosage: UNK
     Dates: start: 20110714
  6. ONDANSETRON [Concomitant]
     Dosage: 8 MG, UNK
     Route: 042
     Dates: start: 20110714
  7. PIPERACILLIN AND TAZOBACTAM [Concomitant]
     Dosage: UNK
     Dates: start: 20110712, end: 20110814
  8. CAPECITABINE [Concomitant]
     Dosage: UNK
     Dates: start: 20110714, end: 20110719
  9. LYMECYCLINE [Concomitant]
     Dosage: 408 MG, QD
     Route: 048
     Dates: start: 20110714
  10. HYDROCORTISONE [Concomitant]
     Dosage: UNK
     Route: 061
     Dates: start: 20110714
  11. ACETAMINOPHEN AND CODEINE PHOSPHATE [Concomitant]
  12. PANITUMUMAB [Suspect]
     Indication: GASTRIC CANCER
     Dosage: UNK
     Dates: start: 20110714
  13. EPIRUBICIN [Concomitant]
     Dosage: UNK
     Dates: start: 20110714
  14. DIPROBASE [Concomitant]
     Dosage: UNK
     Route: 061
     Dates: start: 20110714
  15. LOPERAMIDE HCL [Concomitant]
     Dosage: 2 MG, PRN
     Route: 048

REACTIONS (6)
  - DIARRHOEA [None]
  - INFECTION [None]
  - FATIGUE [None]
  - ABDOMINAL PAIN [None]
  - DECREASED APPETITE [None]
  - NAUSEA [None]
